FAERS Safety Report 13325867 (Version 1)
Quarter: 2017Q1

REPORT INFORMATION
  Report Type: Spontaneous
  Country: US (occurrence: US)
  Receive Date: 20170310
  Receipt Date: 20170310
  Transmission Date: 20170428
  Serious: Yes (Hospitalization)
  Sender: FDA-Public Use
  Company Number: US-VIFOR (INTERNATIONAL) INC.-VIT-2017-02434

PATIENT
  Sex: Female

DRUGS (14)
  1. VELTASSA [Suspect]
     Active Substance: PATIROMER
     Indication: HYPERKALAEMIA
     Route: 048
     Dates: start: 20161012
  2. PREDNISONE. [Concomitant]
     Active Substance: PREDNISONE
  3. OMEPRAZOLE. [Concomitant]
     Active Substance: OMEPRAZOLE
  4. SIMVASTATIN. [Concomitant]
     Active Substance: SIMVASTATIN
  5. XANAX [Concomitant]
     Active Substance: ALPRAZOLAM
  6. CALCITRIOL. [Concomitant]
     Active Substance: CALCITRIOL
  7. LASIX [Concomitant]
     Active Substance: FUROSEMIDE
  8. NORVASC [Concomitant]
     Active Substance: AMLODIPINE BESYLATE
  9. HUMULIN R [Concomitant]
     Active Substance: INSULIN HUMAN
  10. HYDROCHLOROTHIAZIDE. [Concomitant]
     Active Substance: HYDROCHLOROTHIAZIDE
  11. ERGOCALCIFEROL. [Concomitant]
     Active Substance: ERGOCALCIFEROL
  12. VESICARE [Concomitant]
     Active Substance: SOLIFENACIN SUCCINATE
  13. FERROUS SULFATE. [Concomitant]
     Active Substance: FERROUS SULFATE
  14. LANTUS [Concomitant]
     Active Substance: INSULIN GLARGINE

REACTIONS (1)
  - Coronary artery bypass [Unknown]
